FAERS Safety Report 19287876 (Version 14)
Quarter: 2022Q4

REPORT INFORMATION
  Report Type: Other
  Country: JP (occurrence: JP)
  Receive Date: 20210521
  Receipt Date: 20221118
  Transmission Date: 20230113
  Serious: Yes (Life-Threatening, Hospitalization, Other)
  Sender: FDA-Public Use
  Company Number: JP-CHUGAI-A2021014670ROCHE

PATIENT
  Age: 64 Year
  Sex: Male
  Weight: 61.3 kg

DRUGS (9)
  1. ATEZOLIZUMAB [Suspect]
     Active Substance: ATEZOLIZUMAB
     Indication: Lung adenocarcinoma
     Route: 041
     Dates: start: 20210323
  2. ATEZOLIZUMAB [Suspect]
     Active Substance: ATEZOLIZUMAB
     Route: 041
  3. PACLITAXEL [Suspect]
     Active Substance: PACLITAXEL
     Indication: Lung adenocarcinoma
     Dosage: 180MG,ONCE IN1DAY
     Route: 041
     Dates: start: 20210323
  4. PACLITAXEL [Suspect]
     Active Substance: PACLITAXEL
     Dosage: 130 MILLIGRAM, ONCE/WEEK
     Route: 041
     Dates: start: 20210413, end: 20210427
  5. PACLITAXEL [Suspect]
     Active Substance: PACLITAXEL
     Dosage: 130 MILLIGRAM, ONCE/2WEEKS
     Route: 041
     Dates: start: 20210511, end: 20210525
  6. PACLITAXEL [Suspect]
     Active Substance: PACLITAXEL
     Dosage: 130 MILLIGRAM, ONCE/WEEK
     Route: 041
     Dates: start: 20210608, end: 20210622
  7. CARBOPLATIN [Concomitant]
     Active Substance: CARBOPLATIN
     Indication: Lung adenocarcinoma
     Dosage: DOSE INTERVAL UNCERTAINTY
     Route: 041
     Dates: start: 20210323
  8. CARBOPLATIN [Concomitant]
     Active Substance: CARBOPLATIN
     Dosage: 180MG,ONCE IN1DAY
     Route: 041
     Dates: start: 20210518
  9. CORTRIL [Concomitant]
     Active Substance: HYDROCORTISONE
     Route: 048

REACTIONS (16)
  - Urinary tract infection [Recovered/Resolved]
  - Neutrophil count decreased [Recovered/Resolved]
  - Malaise [Recovered/Resolved]
  - Decreased appetite [Recovered/Resolved]
  - Nausea [Recovered/Resolved]
  - Myalgia [Recovering/Resolving]
  - Infection [Recovered/Resolved]
  - Stomatitis [Recovered/Resolved]
  - Taste disorder [Recovered/Resolved]
  - Hiccups [Recovered/Resolved]
  - Peripheral sensory neuropathy [Recovering/Resolving]
  - Sepsis [Recovered/Resolved]
  - Dental caries [Recovering/Resolving]
  - Periodontal disease [Recovered/Resolved]
  - Dehydration [Recovered/Resolved]
  - Dry skin [Recovered/Resolved]

NARRATIVE: CASE EVENT DATE: 20210324
